FAERS Safety Report 21880537 (Version 3)
Quarter: 2023Q1

REPORT INFORMATION
  Report Type: Spontaneous
  Country: US (occurrence: US)
  Receive Date: 20230118
  Receipt Date: 20230302
  Transmission Date: 20230418
  Serious: No
  Sender: FDA-Public Use
  Company Number: US-PFIZER INC-2020478441

PATIENT
  Age: 57 Year
  Sex: Female
  Weight: 68.04 kg

DRUGS (3)
  1. ESTRING [Suspect]
     Active Substance: ESTRADIOL
     Indication: Menopausal symptoms
     Dosage: 1 RING EVERY 6 WEEKS
     Route: 067
  2. ESTRING [Suspect]
     Active Substance: ESTRADIOL
     Indication: Vaginal infection
     Dosage: UNK (EVERY SIX WEEKS)
  3. ESTRING [Suspect]
     Active Substance: ESTRADIOL
     Indication: Vulvovaginal discomfort

REACTIONS (2)
  - Off label use [Unknown]
  - Product prescribing error [Unknown]
